FAERS Safety Report 13064340 (Version 3)
Quarter: 2017Q1

REPORT INFORMATION
  Report Type: Spontaneous
  Country: US (occurrence: US)
  Receive Date: 20161227
  Receipt Date: 20170320
  Transmission Date: 20170428
  Serious: Yes (Other)
  Sender: FDA-Public Use
  Company Number: US-ASTELLAS-2016US050357

PATIENT
  Age: 76 Year
  Sex: Male

DRUGS (7)
  1. NOVOLOG [Concomitant]
     Active Substance: INSULIN ASPART
     Indication: BLOOD GLUCOSE ABNORMAL
     Dosage: UNK UNK, UNKNOWN FREQ.
     Route: 065
  2. XTANDI [Suspect]
     Active Substance: ENZALUTAMIDE
     Route: 048
  3. XTANDI [Suspect]
     Active Substance: ENZALUTAMIDE
     Indication: HORMONE-REFRACTORY PROSTATE CANCER
     Route: 048
     Dates: start: 20161215
  4. GLIPIZIDE. [Concomitant]
     Active Substance: GLIPIZIDE
     Indication: BLOOD GLUCOSE ABNORMAL
     Dosage: UNK UNK, UNKNOWN FREQ.
     Route: 065
  5. METFORMIN [Concomitant]
     Active Substance: METFORMIN HYDROCHLORIDE
     Indication: BLOOD GLUCOSE ABNORMAL
     Dosage: UNK UNK, UNKNOWN FREQ.
     Route: 065
  6. ST JOHN^S WORT [Suspect]
     Active Substance: ST. JOHN^S WORT
     Indication: PRODUCT USED FOR UNKNOWN INDICATION
     Dosage: UNK, UNKNOWN FREQ.
     Route: 065
  7. LANTUS [Concomitant]
     Active Substance: INSULIN GLARGINE
     Indication: BLOOD GLUCOSE ABNORMAL
     Dosage: UNK UNK, UNKNOWN FREQ.
     Route: 065

REACTIONS (3)
  - Blood glucose increased [Unknown]
  - Treatment noncompliance [Unknown]
  - Fatigue [Unknown]

NARRATIVE: CASE EVENT DATE: 20161215
